FAERS Safety Report 10569710 (Version 2)
Quarter: 2014Q4

REPORT INFORMATION
  Report Type: Spontaneous
  Country: BR (occurrence: BR)
  Receive Date: 20141107
  Receipt Date: 20141125
  Transmission Date: 20150529
  Serious: Yes (Hospitalization, Other)
  Sender: FDA-Public Use
  Company Number: BR-AMGEN-BRASP2014086260

PATIENT
  Age: 50 Year
  Sex: Female
  Weight: 88 kg

DRUGS (5)
  1. OXYBUTYNIN [Concomitant]
     Active Substance: OXYBUTYNIN
     Dosage: 10 MG, DAILY (2 TABLETS)
     Dates: start: 2012
  2. CEFALEXIN [Concomitant]
     Active Substance: CEPHALEXIN
     Dosage: STRENGTH 500 MG, AT 2 TABLETS (1000 MG) DAILY
     Dates: start: 201408
  3. ENBREL [Suspect]
     Active Substance: ETANERCEPT
     Indication: RHEUMATOID ARTHRITIS
     Dosage: 50 MG, ONCE WEEKLY
     Route: 065
     Dates: start: 201402, end: 20140807
  4. OMEPRAZOLE. [Concomitant]
     Active Substance: OMEPRAZOLE
     Dosage: STRENGTH 20MG, AT 2 TABLETS (40MG) DAILY
     Dates: start: 2011
  5. METHOTREXATE [Concomitant]
     Active Substance: METHOTREXATE
     Dosage: 7 TO 8 TABLETS PER WEEK
     Dates: start: 2011

REACTIONS (5)
  - Pain in extremity [Not Recovered/Not Resolved]
  - Arthropathy [Recovering/Resolving]
  - Sepsis [Unknown]
  - Pain [Not Recovered/Not Resolved]
  - Arthralgia [Not Recovered/Not Resolved]

NARRATIVE: CASE EVENT DATE: 2014
